FAERS Safety Report 20139040 (Version 1)
Quarter: 2021Q4

REPORT INFORMATION
  Report Type: Spontaneous
  Country: GB (occurrence: GB)
  Receive Date: 20211202
  Receipt Date: 20211202
  Transmission Date: 20220303
  Serious: Yes (Other)
  Sender: FDA-Public Use
  Company Number: GB-MYLANLABS-2021M1088673

PATIENT

DRUGS (2)
  1. CYSTEAMINE [Suspect]
     Active Substance: CYSTEAMINE
     Indication: Cystinosis
     Dosage: UNK
     Route: 047
     Dates: start: 2018, end: 202111
  2. CYSTEAMINE [Suspect]
     Active Substance: CYSTEAMINE
     Dosage: UNK (REDUCED DOSE)
     Route: 047
     Dates: start: 202111

REACTIONS (2)
  - Cataract [Unknown]
  - Eye pain [Not Recovered/Not Resolved]

NARRATIVE: CASE EVENT DATE: 20211101
